FAERS Safety Report 7178817-2 (Version None)
Quarter: 2010Q4

REPORT INFORMATION
  Report Type: 
  Country: None (occurrence: None)
  Receive Date: 20101221
  Receipt Date: 20101217
  Transmission Date: 20110411
  Serious: Yes (Other)
  Sender: FDA-Public Use
  Company Number: US-CEPHALON-2010006523

PATIENT
  Sex: Female
  Weight: 50 kg

DRUGS (5)
  1. NUVIGIL [Suspect]
     Indication: SOMNOLENCE
     Route: 048
     Dates: start: 20101110, end: 20101111
  2. NUVIGIL [Suspect]
     Route: 048
     Dates: start: 20101111, end: 20101112
  3. ZOLOFT [Concomitant]
     Dates: start: 20030101
  4. ENABLEX [Concomitant]
     Dates: start: 20090101
  5. OMEPRAZOLE [Concomitant]
     Dates: start: 20080101

REACTIONS (4)
  - ANXIETY [None]
  - DYSPNOEA [None]
  - HEADACHE [None]
  - IRRITABILITY [None]
